FAERS Safety Report 20359627 (Version 1)
Quarter: 2022Q1

REPORT INFORMATION
  Report Type: Report from Study
  Country: US (occurrence: None)
  Receive Date: 20220121
  Receipt Date: 20220121
  Transmission Date: 20220423
  Serious: Yes (Other)
  Sender: FDA-Public Use
  Company Number: US-ROCHE-2849828

PATIENT
  Age: 58 Year
  Sex: Male
  Weight: 106 kg

DRUGS (28)
  1. RANIBIZUMAB [Suspect]
     Active Substance: RANIBIZUMAB
     Indication: Diabetic retinal oedema
     Dosage: DOSE OF STUDY DRUG FIRST ADMINISTERED 10 MG/ML?DOSE LAST STUDY DRUG ADMIN PRIOR AE 100 MG/ML?START D
     Route: 050
     Dates: start: 20201023
  2. RANIBIZUMAB [Suspect]
     Active Substance: RANIBIZUMAB
  3. RANIBIZUMAB [Suspect]
     Active Substance: RANIBIZUMAB
  4. RANIBIZUMAB [Suspect]
     Active Substance: RANIBIZUMAB
  5. RANIBIZUMAB [Suspect]
     Active Substance: RANIBIZUMAB
  6. RANIBIZUMAB [Suspect]
     Active Substance: RANIBIZUMAB
  7. RANIBIZUMAB [Concomitant]
     Active Substance: RANIBIZUMAB
     Dosage: DRUG DOSE FIRST ADMINISTERED IS 6 MG/ML?START DATE OF MOST RECENT DOSE OF STUDY DRUG 03/FEB/2021 AND
     Route: 050
     Dates: start: 20201023
  8. RAMIPRIL [Concomitant]
     Active Substance: RAMIPRIL
     Indication: Hypertension
     Route: 048
     Dates: start: 2016
  9. METFORMIN HYDROCHLORIDE [Concomitant]
     Active Substance: METFORMIN HYDROCHLORIDE
     Indication: Diabetes mellitus
     Route: 048
     Dates: start: 2014
  10. VICTOZA [Concomitant]
     Active Substance: LIRAGLUTIDE
     Indication: Diabetes mellitus
     Route: 048
     Dates: start: 2018
  11. ATORVASTATIN [Concomitant]
     Active Substance: ATORVASTATIN
     Indication: Hypercholesterolaemia
     Route: 048
     Dates: start: 2018
  12. POLYTRIM [Concomitant]
     Active Substance: POLYMYXIN B SULFATE\TRIMETHOPRIM SULFATE
     Route: 047
     Dates: start: 20210312, end: 20210427
  13. POLYTRIM [Concomitant]
     Active Substance: POLYMYXIN B SULFATE\TRIMETHOPRIM SULFATE
     Route: 047
     Dates: start: 20210514, end: 20210608
  14. POLYTRIM [Concomitant]
     Active Substance: POLYMYXIN B SULFATE\TRIMETHOPRIM SULFATE
     Dosage: S/P PDS REVISION SURGERY
     Route: 047
     Dates: start: 20210427, end: 20210514
  15. POLYTRIM [Concomitant]
     Active Substance: POLYMYXIN B SULFATE\TRIMETHOPRIM SULFATE
     Dosage: S/P PDS REVISION SURGERY
     Route: 047
     Dates: start: 20210806, end: 20210809
  16. POLYTRIM [Concomitant]
     Active Substance: POLYMYXIN B SULFATE\TRIMETHOPRIM SULFATE
     Dosage: S/P PDS REVISION SURGERY
     Route: 047
     Dates: start: 20220114, end: 20220117
  17. CYCLOGYL [Concomitant]
     Active Substance: CYCLOPENTOLATE HYDROCHLORIDE
     Indication: Uveitis
     Route: 047
     Dates: start: 20210312, end: 20210427
  18. PRED FORTE [Concomitant]
     Active Substance: PREDNISOLONE ACETATE
     Route: 047
     Dates: start: 20210327, end: 20210425
  19. PRED FORTE [Concomitant]
     Active Substance: PREDNISOLONE ACETATE
     Route: 047
     Dates: start: 20210514, end: 20210608
  20. PRED FORTE [Concomitant]
     Active Substance: PREDNISOLONE ACETATE
     Dosage: S/P PDS REVISION SURGERY
     Route: 047
     Dates: start: 20120427, end: 20210514
  21. PRED FORTE [Concomitant]
     Active Substance: PREDNISOLONE ACETATE
     Dosage: S/P PDS REVISION SURGERY
     Route: 047
     Dates: start: 20210706, end: 20210806
  22. PRED FORTE [Concomitant]
     Active Substance: PREDNISOLONE ACETATE
     Dosage: S/P PDS REVISION SURGERY
     Route: 047
     Dates: start: 20210806, end: 20210824
  23. PRED FORTE [Concomitant]
     Active Substance: PREDNISOLONE ACETATE
     Route: 047
     Dates: start: 20210427, end: 20210514
  24. PRED FORTE [Concomitant]
     Active Substance: PREDNISOLONE ACETATE
     Route: 047
     Dates: start: 20210608, end: 20210706
  25. PRED FORTE [Concomitant]
     Active Substance: PREDNISOLONE ACETATE
     Route: 047
     Dates: start: 20220117
  26. ATROPINE [Concomitant]
     Active Substance: ATROPINE
     Route: 047
     Dates: start: 20210514, end: 20210608
  27. MURO 128 [Concomitant]
     Active Substance: SODIUM CHLORIDE
     Indication: Corneal oedema
     Route: 047
     Dates: start: 20210521, end: 20210706
  28. TOBRADEX [Concomitant]
     Active Substance: DEXAMETHASONE\TOBRAMYCIN
     Indication: Uveitis
     Route: 047
     Dates: start: 20220117

REACTIONS (1)
  - Conjunctival bleb [Not Recovered/Not Resolved]

NARRATIVE: CASE EVENT DATE: 20210511
